FAERS Safety Report 4858139-2 (Version None)
Quarter: 2005Q4

REPORT INFORMATION
  Report Type: 
  Country: None (occurrence: None)
  Receive Date: 20051219
  Receipt Date: 20050315
  Transmission Date: 20060501
  Serious: No
  Sender: FDA-Public Use
  Company Number: US-GLAXOSMITHKLINE-A0549831A

PATIENT
  Age: 69 Year
  Sex: Male

DRUGS (5)
  1. NICODERM CQ [Suspect]
     Dates: start: 20050101
  2. NICODERM CQ [Suspect]
     Dates: start: 20050101
  3. NICODERM CQ [Suspect]
     Dates: start: 20050101
  4. DEPAKOTE [Concomitant]
  5. EFFEXOR [Concomitant]

REACTIONS (2)
  - ANXIETY [None]
  - DEPRESSION [None]
